FAERS Safety Report 4606944-X (Version None)
Quarter: 2005Q1

REPORT INFORMATION
  Report Type: 
  Country: None (occurrence: None)
  Receive Date: 20050309
  Receipt Date: 20050222
  Transmission Date: 20050727
  Serious: Yes (Other)
  Sender: FDA-Public Use
  Company Number: DSA_25965-2005

PATIENT
  Sex: Female

DRUGS (2)
  1. CARDIZEM [Suspect]
     Dosage: DF PO
     Route: 048
  2. RELPAX [Suspect]
     Indication: MIGRAINE
     Dosage: DF

REACTIONS (4)
  - DRUG INTERACTION [None]
  - FEELING ABNORMAL [None]
  - HEART RATE INCREASED [None]
  - MIGRAINE [None]
